FAERS Safety Report 18140641 (Version 1)
Quarter: 2020Q3

REPORT INFORMATION
  Report Type: Spontaneous
  Country: SE (occurrence: SE)
  Receive Date: 20200812
  Receipt Date: 20200812
  Transmission Date: 20201103
  Serious: Yes (Hospitalization)
  Sender: FDA-Public Use
  Company Number: SE-MYLANLABS-2020M1070277

PATIENT
  Age: 54 Year
  Sex: Male

DRUGS (14)
  1. ADPORT [Concomitant]
     Active Substance: TACROLIMUS
     Dosage: UNK
  2. EPORATIO [Concomitant]
     Active Substance: ERYTHROPOIETIN
     Dosage: UNK
  3. ALFACALCIDOL [Concomitant]
     Active Substance: ALFACALCIDOL
     Dosage: UNK
  4. MYCOPHENOLATE [Concomitant]
     Active Substance: MYCOPHENOLIC ACID
     Dosage: UNK
  5. DOXAZOSIN [Concomitant]
     Active Substance: DOXAZOSIN MESYLATE
     Dosage: UNK
  6. ACICLOVIR [Suspect]
     Active Substance: ACYCLOVIR
     Indication: CYTOMEGALOVIRUS COLITIS
     Dosage: UNK
     Dates: end: 20190619
  7. ONDASETRON                         /00955301/ [Concomitant]
     Active Substance: ONDANSETRON
     Dosage: UNK
  8. BLOXAZOC [Concomitant]
     Active Substance: METOPROLOL SUCCINATE
     Dosage: UNK
  9. NATRIUMBIKARBONAT [Concomitant]
     Active Substance: SODIUM BICARBONATE
     Dosage: UNK
  10. SEVELAMER [Concomitant]
     Active Substance: SEVELAMER
     Dosage: UNK
  11. PREDNISOLON                        /00016201/ [Concomitant]
     Active Substance: PREDNISOLONE
     Dosage: UNK
  12. LOPERAMID [Concomitant]
     Active Substance: LOPERAMIDE
     Dosage: VB
  13. ESOMEPRAZOL                        /01479301/ [Concomitant]
     Active Substance: ESOMEPRAZOLE
     Dosage: UNK
  14. KALEROID [Concomitant]
     Active Substance: POTASSIUM CHLORIDE
     Dosage: UNK

REACTIONS (1)
  - Neutropenia [Recovering/Resolving]

NARRATIVE: CASE EVENT DATE: 20190619
